FAERS Safety Report 7207610-7 (Version None)
Quarter: 2011Q1

REPORT INFORMATION
  Report Type: 
  Country: None (occurrence: None)
  Receive Date: 20110103
  Receipt Date: 20101220
  Transmission Date: 20110831
  Serious: Yes (Death, Hospitalization)
  Sender: FDA-Public Use
  Company Number: FR-PURDUE-USA-2010-0043163

PATIENT
  Sex: Male
  Weight: 51 kg

DRUGS (18)
  1. TRAMADOL (SIMILAR TO NDA 21-745) [Suspect]
     Indication: HEADACHE
     Dosage: UNK
     Dates: start: 20091114, end: 20091201
  2. EFFEXOR [Concomitant]
     Indication: DEPRESSION
     Dosage: 75 MG, DAILY
     Dates: start: 20091023
  3. PROPOFAN                           /00765201/ [Concomitant]
     Indication: HEADACHE
     Dosage: UNK
     Dates: start: 20090801, end: 20091027
  4. ULTRACET [Concomitant]
     Indication: PRODUCT USED FOR UNKNOWN INDICATION
     Dosage: UNK
     Dates: start: 20090801, end: 20091027
  5. STILNOX [Suspect]
     Indication: PROPHYLAXIS
     Dosage: UNK
     Dates: start: 20091202
  6. EQUANIL [Concomitant]
     Indication: DEPRESSION
     Dosage: UNK
     Dates: start: 20091202
  7. ACTIFED                            /00005601/ [Concomitant]
     Indication: RHINITIS ALLERGIC
     Dosage: UNK
     Dates: start: 20071010, end: 20091027
  8. PROPOFAN                           /00765201/ [Concomitant]
     Indication: PAIN
     Dosage: 10 TABLET, PRN
     Dates: start: 20091027
  9. CLARITIN [Concomitant]
     Indication: SEASONAL ALLERGY
     Dosage: 1 TABLET, PRN
     Dates: start: 20100101
  10. NEXAVAR [Suspect]
     Indication: HEPATIC NEOPLASM MALIGNANT
     Dosage: 400 MG, DAILY
     Route: 048
     Dates: start: 20091021, end: 20100407
  11. OXYCODONE HCL [Suspect]
     Indication: PAIN
     Dosage: UNK
     Dates: start: 20091202
  12. XANAX [Suspect]
     Indication: DEPRESSION
     Dosage: UNK
     Dates: start: 20091202
  13. GARDENAL                           /00023201/ [Concomitant]
     Indication: EPILEPSY
     Dosage: 100 MG, DAILY
     Route: 048
     Dates: start: 19990101
  14. OMEPRAZOLE [Concomitant]
     Indication: PROPHYLAXIS
     Dosage: 2 TABLET, PRN
     Dates: start: 20090801
  15. PARACETAMOL [Concomitant]
     Indication: PAIN
     Dosage: UNK TABLET, DAILY
     Dates: start: 20090801, end: 20091027
  16. PARACETAMOL [Concomitant]
     Indication: HEADACHE
  17. TRAMADOL (SIMILAR TO NDA 21-745) [Suspect]
     Indication: PAIN
     Dosage: UNK
     Dates: start: 20091201
  18. NEURONTIN [Suspect]
     Indication: HEADACHE
     Dosage: 300 MG, DAILY
     Dates: start: 20091114

REACTIONS (7)
  - NEOPLASM MALIGNANT [None]
  - WEIGHT DECREASED [None]
  - WHITE BLOOD CELL COUNT INCREASED [None]
  - HEPATIC NEOPLASM MALIGNANT [None]
  - MALNUTRITION [None]
  - CONFUSIONAL STATE [None]
  - C-REACTIVE PROTEIN INCREASED [None]
